FAERS Safety Report 6645476-4 (Version None)
Quarter: 2010Q1

REPORT INFORMATION
  Report Type: 
  Country: None (occurrence: None)
  Receive Date: 20100323
  Receipt Date: 20100311
  Transmission Date: 20100710
  Serious: Yes (Hospitalization)
  Sender: FDA-Public Use
  Company Number: US-BIOGENIDEC-2010BI007104

PATIENT
  Age: 36 Year
  Sex: Female

DRUGS (19)
  1. TYSABRI [Suspect]
     Indication: MULTIPLE SCLEROSIS
     Route: 042
     Dates: start: 20080806
  2. CLINDAMYCIN [Concomitant]
  3. MORPHINE [Concomitant]
  4. ZOFRAN [Concomitant]
  5. VALIUM [Concomitant]
  6. MYLANTA [Concomitant]
  7. TYLENOL-500 [Concomitant]
  8. COLACE [Concomitant]
  9. RESTORIL [Concomitant]
  10. DETROL [Concomitant]
  11. CLOTRIMAZOLE [Concomitant]
  12. LYRICA [Concomitant]
  13. EFFEXOR [Concomitant]
  14. ADDERALL 30 [Concomitant]
  15. MECLIZINE [Concomitant]
  16. ALLEGRA [Concomitant]
  17. YASMIN [Concomitant]
  18. PROTONIX [Concomitant]
  19. PROAIR HFA [Concomitant]

REACTIONS (6)
  - CONSTIPATION [None]
  - DEPRESSED LEVEL OF CONSCIOUSNESS [None]
  - FACET JOINT SYNDROME [None]
  - INTERVERTEBRAL DISC PROTRUSION [None]
  - MULTIPLE SCLEROSIS RELAPSE [None]
  - STRESS URINARY INCONTINENCE [None]
